FAERS Safety Report 6134890-1 (Version None)
Quarter: 2009Q1

REPORT INFORMATION
  Report Type: 
  Country: None (occurrence: None)
  Receive Date: 20090327
  Receipt Date: 20090305
  Transmission Date: 20090719
  Serious: Yes (Hospitalization)
  Sender: FDA-Public Use
  Company Number: AU-PFIZER INC-2009182319

PATIENT

DRUGS (1)
  1. CHAMPIX [Suspect]
     Route: 048
     Dates: start: 20081015, end: 20081128

REACTIONS (2)
  - AGGRESSION [None]
  - VIOLENCE-RELATED SYMPTOM [None]
